FAERS Safety Report 8518632-8 (Version None)
Quarter: 2012Q3

REPORT INFORMATION
  Report Type: 
  Country: None (occurrence: None)
  Receive Date: 20120718
  Receipt Date: 20120713
  Transmission Date: 20120928
  Serious: No
  Sender: FDA-Public Use
  Company Number: US-PFIZER INC-2012134126

PATIENT
  Sex: Female
  Weight: 44.444 kg

DRUGS (3)
  1. LORATADINE AND PSEUDOEPHEDRINE SULFATE [Suspect]
     Indication: HYPERSENSITIVITY
     Dosage: UNK, 1X/DAY
     Route: 048
     Dates: start: 20120602, end: 20120602
  2. METFORMIN [Concomitant]
     Indication: DIABETES MELLITUS
     Dosage: UNK
  3. ALAVERT [Suspect]
     Indication: HYPERSENSITIVITY
     Dosage: UNK, 1X/DAY
     Route: 048
     Dates: start: 20120528, end: 20120601

REACTIONS (2)
  - DECREASED APPETITE [None]
  - NAUSEA [None]
